FAERS Safety Report 10581412 (Version 1)
Quarter: 2014Q4

REPORT INFORMATION
  Report Type: Spontaneous
  Country: US (occurrence: US)
  Receive Date: 20141113
  Receipt Date: 20141113
  Transmission Date: 20150529
  Serious: No
  Sender: FDA-Public Use
  Company Number: US-009507513-1411USA003067

PATIENT
  Sex: Female

DRUGS (1)
  1. MAXALT [Suspect]
     Active Substance: RIZATRIPTAN BENZOATE
     Indication: MIGRAINE
     Dosage: 1 DOSE THE FIRST DAY, TOOK IT AGAIN THE SECOND DAY. SHE TOOK THREE PILLS THIS WEEK
     Route: 048
     Dates: start: 201208, end: 201208

REACTIONS (5)
  - Screaming [Recovered/Resolved]
  - Vertigo [Recovered/Resolved]
  - Sleep disorder [Recovered/Resolved]
  - Drug ineffective [Unknown]
  - Vomiting [Recovered/Resolved]

NARRATIVE: CASE EVENT DATE: 201208
